FAERS Safety Report 8024303-7 (Version None)
Quarter: 2012Q1

REPORT INFORMATION
  Report Type: 
  Country: None (occurrence: None)
  Receive Date: 20120105
  Receipt Date: 20111230
  Transmission Date: 20120608
  Serious: Yes (Death)
  Sender: FDA-Public Use
  Company Number: US-CELGENEUS-163-21880-12010083

PATIENT
  Sex: Male

DRUGS (4)
  1. BUMETANIDE [Concomitant]
     Route: 065
  2. REVLIMID [Suspect]
     Dosage: 10 MILLIGRAM
     Route: 048
     Dates: start: 20111212
  3. POTASSIUM CHLORIDE CR [Concomitant]
     Route: 065
  4. NEXIUM [Concomitant]
     Route: 065

REACTIONS (1)
  - CARDIAC ARREST [None]
